FAERS Safety Report 9092886 (Version 1)
Quarter: 2013Q1

REPORT INFORMATION
  Report Type: Report from Study
  Country: US (occurrence: US)
  Receive Date: 20130131
  Receipt Date: 20130131
  Transmission Date: 20140127
  Serious: No
  Sender: FDA-Public Use
  Company Number: US-ABBOTT-12P-163-0970250-00

PATIENT
  Age: 34 Year
  Sex: Female

DRUGS (10)
  1. HUMIRA 40 MG/0.8 ML PEN [Suspect]
     Indication: CROHN^S DISEASE
     Dates: start: 20120705
  2. IMURAN [Concomitant]
     Indication: CROHN^S DISEASE
     Dosage: 150MG
  3. PRILOSEC [Concomitant]
     Indication: CROHN^S DISEASE
     Dosage: 40MG
  4. NORCO [Concomitant]
     Indication: CROHN^S DISEASE
  5. LASIX [Concomitant]
     Indication: SWELLING
     Dosage: 40MG
  6. COUMADIN [Concomitant]
     Indication: THROMBOSIS PROPHYLAXIS
     Dosage: 10MG ALTERNATING WITH 15MG DEPENDING ON LAB VALUES DUE TO FILTER
  7. IRON [Concomitant]
     Indication: ANAEMIA
  8. IRON [Concomitant]
     Dates: start: 20121018
  9. LEXAPRO [Concomitant]
     Indication: DEPRESSION
  10. POTASSIUM CHLORIDE [Concomitant]
     Indication: BLOOD POTASSIUM DECREASED
     Dates: start: 20121024

REACTIONS (5)
  - Rash [Recovering/Resolving]
  - Rash pruritic [Recovered/Resolved]
  - Urticaria [Not Recovered/Not Resolved]
  - Blood iron decreased [Not Recovered/Not Resolved]
  - Blood potassium decreased [Not Recovered/Not Resolved]
